FAERS Safety Report 8860974 (Version 6)
Quarter: 2013Q1

REPORT INFORMATION
  Report Type: Spontaneous
  Country: US (occurrence: US)
  Receive Date: 20121025
  Receipt Date: 20130313
  Transmission Date: 20140127
  Serious: Yes (Hospitalization, Disabling, Other)
  Sender: FDA-Public Use
  Company Number: US-009507513-1210USA005991

PATIENT
  Sex: Female
  Weight: 53.97 kg

DRUGS (6)
  1. FOSAMAX [Suspect]
     Indication: OSTEOPOROSIS
     Dosage: 70 MG, QW
     Route: 048
     Dates: start: 200007
  2. ALENDRONATE SODIUM [Suspect]
     Dosage: 70 MG, UNK
     Route: 048
     Dates: start: 20080417
  3. PLAQUENIL [Concomitant]
     Indication: SYSTEMIC LUPUS ERYTHEMATOSUS
     Dosage: UNK
     Dates: start: 199608
  4. VITAMINS (UNSPECIFIED) [Concomitant]
     Dosage: 1500 MG, UNK
     Dates: start: 1999
  5. CALCIUM (UNSPECIFIED) [Concomitant]
     Dosage: 500 MG, UNK
     Dates: start: 1999
  6. VITAMIN D (UNSPECIFIED) [Concomitant]
     Dosage: UNK
     Dates: start: 20050329

REACTIONS (24)
  - Femur fracture [Recovered/Resolved]
  - Open reduction of fracture [Not Recovered/Not Resolved]
  - Fall [Unknown]
  - Hypothyroidism [Not Recovered/Not Resolved]
  - Oral surgery [Unknown]
  - Endodontic procedure [Unknown]
  - Oral surgery [Unknown]
  - Bronchitis [Unknown]
  - Osteoarthritis [Not Recovered/Not Resolved]
  - Rheumatoid arthritis [Unknown]
  - Hyperlipidaemia [Unknown]
  - Radius fracture [Unknown]
  - Fall [Unknown]
  - Migraine [Unknown]
  - Bone loss [Unknown]
  - Fatigue [Unknown]
  - Malaise [Unknown]
  - Drug hypersensitivity [Unknown]
  - Gastrooesophageal reflux disease [Unknown]
  - Constipation [Recovering/Resolving]
  - Transfusion [Recovering/Resolving]
  - Anaemia postoperative [Recovering/Resolving]
  - Local swelling [Recovering/Resolving]
  - Asthenia [Unknown]
